FAERS Safety Report 5664907-X (Version None)
Quarter: 2008Q1

REPORT INFORMATION
  Report Type: 
  Country: None (occurrence: None)
  Receive Date: 20080314
  Receipt Date: 20080303
  Transmission Date: 20080703
  Serious: Yes (Other)
  Sender: FDA-Public Use
  Company Number: DE-GILEAD-2008-0015563

PATIENT
  Age: 51 Year
  Sex: Male

DRUGS (1)
  1. TRUVADA [Suspect]
     Route: 048
     Dates: start: 20060407

REACTIONS (1)
  - VASCULITIS [None]
